FAERS Safety Report 19913430 (Version 1)
Quarter: 2021Q4

REPORT INFORMATION
  Report Type: Spontaneous
  Country: US (occurrence: US)
  Receive Date: 20211004
  Receipt Date: 20211004
  Transmission Date: 20220303
  Serious: No
  Sender: FDA-Public Use
  Company Number: US-PFIZER INC-2020350417

PATIENT
  Age: 71 Year
  Sex: Female
  Weight: 95.25 kg

DRUGS (2)
  1. CHANTIX [Suspect]
     Active Substance: VARENICLINE TARTRATE
     Indication: Smoking cessation therapy
     Dosage: 1 MG, TWICE DAILY (1 MG TABLETS TAKING 1 IN THE MORNING 1 IN THE EVENING)
  2. CHANTIX [Suspect]
     Active Substance: VARENICLINE TARTRATE
     Dosage: UNK, ONCE DAILY, (1 PO Q DAY, QUANTITY FOR 90 DAYS: FOR 1 YEAR)
     Route: 048

REACTIONS (4)
  - Intentional product use issue [Unknown]
  - Intentional dose omission [Unknown]
  - Product prescribing issue [Unknown]
  - Chronic obstructive pulmonary disease [Unknown]
